FAERS Safety Report 21616237 (Version 1)
Quarter: 2022Q4

REPORT INFORMATION
  Report Type: Spontaneous
  Country: US (occurrence: US)
  Receive Date: 20221118
  Receipt Date: 20221118
  Transmission Date: 20230113
  Serious: Yes (Hospitalization, Congenital Anomaly, Other)
  Sender: FDA-Public Use
  Company Number: US-BRISTOL-MYERS SQUIBB COMPANY-2022-135011

PATIENT
  Age: 54 Year
  Sex: Male
  Weight: 79.8 kg

DRUGS (1)
  1. BELATACEPT [Suspect]
     Active Substance: BELATACEPT
     Indication: Renal transplant
     Route: 065

REACTIONS (9)
  - Road traffic accident [Unknown]
  - Facial bones fracture [Unknown]
  - Jaw fracture [Unknown]
  - Contusion [Unknown]
  - Ligament sprain [Unknown]
  - Renal haemorrhage [Unknown]
  - Pulmonary mass [Unknown]
  - Hepatic cyst [Unknown]
  - Nephrolithiasis [Unknown]

NARRATIVE: CASE EVENT DATE: 20221014
